FAERS Safety Report 8769718 (Version 1)
Quarter: 2012Q4

REPORT INFORMATION
  Report Type: 
  Country: US (occurrence: US)
  Receive Date: 20120905
  Receipt Date: 20120905
  Transmission Date: 20130627
  Serious: No
  Sender: FDA-Public Use
  Company Number: US-009507513-1208USA009592

PATIENT

DRUGS (1)
  1. SAPHRIS [Suspect]
     Dosage: 5 mg, qd
     Route: 060

REACTIONS (3)
  - Pharyngeal oedema [Recovered/Resolved]
  - Hypersensitivity [Recovered/Resolved]
  - Underdose [Unknown]
